FAERS Safety Report 9295609 (Version 1)
Quarter: 2013Q2

REPORT INFORMATION
  Report Type: Spontaneous
  Country: US (occurrence: US)
  Receive Date: 20130517
  Receipt Date: 20130517
  Transmission Date: 20140414
  Serious: Yes (Hospitalization)
  Sender: FDA-Public Use
  Company Number: US-BAYER-2013-058706

PATIENT
  Age: 77 Year
  Sex: Female

DRUGS (5)
  1. NEXAVAR [Suspect]
     Indication: RENAL CANCER
     Dosage: 200 MG, 2 DAY
  2. AMLODIPINE [Concomitant]
  3. PLAVIX [Concomitant]
  4. WARFARIN [Concomitant]
  5. HYDROCODONE W/APAP [Concomitant]

REACTIONS (1)
  - Acute myocardial infarction [Recovered/Resolved]
